FAERS Safety Report 5916114-0 (Version None)
Quarter: 2008Q4

REPORT INFORMATION
  Report Type: 
  Country: None (occurrence: None)
  Receive Date: 20081013
  Receipt Date: 20080912
  Transmission Date: 20090506
  Serious: No
  Sender: FDA-Public Use
  Company Number: US-BAYER-200833520NA

PATIENT
  Sex: Female

DRUGS (2)
  1. CIPRO [Suspect]
     Indication: INFECTION PROPHYLAXIS
  2. METRONIDAZOLE [Suspect]
     Indication: INFECTION PROPHYLAXIS

REACTIONS (1)
  - ASTHENIA [None]
